FAERS Safety Report 7654012-5 (Version None)
Quarter: 2011Q3

REPORT INFORMATION
  Report Type: 
  Country: None (occurrence: None)
  Receive Date: 20110803
  Receipt Date: 20110725
  Transmission Date: 20111222
  Serious: No
  Sender: FDA-Public Use
  Company Number: US-BAYER-2011-065888

PATIENT
  Sex: Female

DRUGS (1)
  1. ALEVE (CAPLET) [Suspect]
     Indication: PAIN
     Dosage: POSSIBLE OVERDOSE
     Route: 048
     Dates: start: 20110724

REACTIONS (1)
  - PAIN [None]
